FAERS Safety Report 23309387 (Version 2)
Quarter: 2024Q1

REPORT INFORMATION
  Report Type: Spontaneous
  Country: JP (occurrence: JP)
  Receive Date: 20231218
  Receipt Date: 20240130
  Transmission Date: 20240410
  Serious: Yes (Other)
  Sender: FDA-Public Use
  Company Number: JP-CORZA MEDICAL GMBH-2023-JP-002231

PATIENT
  Age: 83 Year
  Sex: Female

DRUGS (1)
  1. TACHOSIL [Suspect]
     Active Substance: FIBRINOGEN HUMAN\THROMBIN HUMAN
     Indication: Ventricle rupture
     Dosage: UNK
     Route: 065

REACTIONS (1)
  - Hypoxic-ischaemic encephalopathy [Unknown]
